FAERS Safety Report 8145114-8 (Version None)
Quarter: 2012Q1

REPORT INFORMATION
  Report Type: 
  Country: None (occurrence: None)
  Receive Date: 20120217
  Receipt Date: 20120214
  Transmission Date: 20120608
  Serious: Yes (Hospitalization, Other)
  Sender: FDA-Public Use
  Company Number: PHHO2010JP12476

PATIENT
  Sex: Male
  Weight: 115 kg

DRUGS (16)
  1. BLINDED NO TREATMENT RECEIVED [Suspect]
     Indication: CARDIAC FAILURE
     Dosage: RUN-IN PHASE
  2. ALISKIREN [Suspect]
     Dosage: 300 MG, UNK
     Route: 048
     Dates: start: 20100508, end: 20100813
  3. ENALAPRIL MALEATE [Suspect]
     Dosage: 20 MG, DAILY
     Route: 048
     Dates: start: 20100312, end: 20100813
  4. CARVEDILOL [Concomitant]
     Indication: CARDIAC FAILURE CHRONIC
     Dosage: UNK
  5. ALDACTONE [Concomitant]
     Indication: CARDIAC FAILURE CHRONIC
  6. ALISKIREN [Suspect]
     Indication: CARDIAC FAILURE
     Dosage: 150 MG, UNK
     Route: 048
     Dates: start: 20100410, end: 20100507
  7. ALISKIREN [Suspect]
     Dosage: 150 MG DAILY
     Route: 048
     Dates: start: 20100818
  8. BENZBROMARONE [Concomitant]
     Indication: HYPERURICAEMIA
  9. DIART [Concomitant]
     Indication: CARDIAC FAILURE CHRONIC
  10. IRZAIM [Concomitant]
     Indication: HYPERURICAEMIA
  11. BLINDED ALISKIREN [Suspect]
     Indication: CARDIAC FAILURE
     Dosage: RUN-IN PHASE
  12. ENALAPRIL MALEATE [Suspect]
     Indication: CARDIAC FAILURE
     Dosage: RUN-IN PHASE
  13. ENALAPRIL MALEATE [Suspect]
     Dosage: 10 MG DAILY
     Route: 048
     Dates: start: 20100818
  14. MUCOSTA [Concomitant]
     Indication: HYPERURICAEMIA
  15. ENALAPRIL MALEATE [Suspect]
     Indication: CARDIAC FAILURE
     Dosage: 10 MG, DAILY
     Route: 048
     Dates: start: 20100220, end: 20100311
  16. INDOMETHACIN [Concomitant]
     Indication: HYPERURICAEMIA

REACTIONS (5)
  - GENERAL PHYSICAL HEALTH DETERIORATION [None]
  - DIABETIC KETOACIDOSIS [None]
  - BLOOD TRIGLYCERIDES INCREASED [None]
  - DIABETES MELLITUS [None]
  - BLOOD GLUCOSE INCREASED [None]
